FAERS Safety Report 7044034-X (Version None)
Quarter: 2010Q4

REPORT INFORMATION
  Report Type: 
  Country: None (occurrence: None)
  Receive Date: 20101013
  Receipt Date: 20101013
  Transmission Date: 20110411
  Serious: Yes (Life-Threatening)
  Sender: FDA-Public Use
  Company Number: None

PATIENT
  Age: 64 Year
  Sex: Male
  Weight: 63 kg

DRUGS (2)
  1. AMIODARONE HCL [Suspect]
     Indication: VENTRICULAR FIBRILLATION
     Dosage: 1050MG OVER 24 HOURS IV DRIP
     Route: 041
     Dates: start: 20101011, end: 20101012
  2. FLUCONAZOLE [Suspect]
     Indication: PROPHYLAXIS
     Dosage: 400MG DAILY PO SEVERAL WEEKS
     Route: 048

REACTIONS (1)
  - TORSADE DE POINTES [None]
